FAERS Safety Report 7214782-7 (Version None)
Quarter: 2011Q1

REPORT INFORMATION
  Report Type: 
  Country: None (occurrence: None)
  Receive Date: 20110107
  Receipt Date: 20100401
  Transmission Date: 20110831
  Serious: No
  Sender: FDA-Public Use
  Company Number: A0844248A

PATIENT
  Age: 72 Year
  Sex: Male
  Weight: 91.4 kg

DRUGS (4)
  1. LOVAZA [Suspect]
     Dosage: 2CAP TWICE PER DAY
     Route: 048
     Dates: start: 20100122, end: 20100201
  2. LIPITOR [Concomitant]
     Dosage: 40MG AT NIGHT
     Dates: start: 20080101
  3. COREG [Concomitant]
     Dosage: .5TAB TWICE PER DAY
     Dates: start: 20080101
  4. PLAVIX [Concomitant]
     Dosage: 1TAB ALTERNATE DAYS
     Dates: start: 20060101

REACTIONS (4)
  - DECREASED APPETITE [None]
  - DISTURBANCE IN ATTENTION [None]
  - DIZZINESS [None]
  - FEELING ABNORMAL [None]
